FAERS Safety Report 24098273 (Version 1)
Quarter: 2024Q3

REPORT INFORMATION
  Report Type: Spontaneous
  Country: US (occurrence: US)
  Receive Date: 20240716
  Receipt Date: 20240716
  Transmission Date: 20241017
  Serious: Yes (Other)
  Sender: AMGEN
  Company Number: US-AMGEN-USASP2024138825

PATIENT
  Age: 12 Year
  Sex: Female

DRUGS (3)
  1. BEVACIZUMAB [Suspect]
     Active Substance: BEVACIZUMAB
     Indication: Medulloblastoma
     Dosage: UNK
     Route: 065
  2. AXITINIB [Suspect]
     Active Substance: AXITINIB
     Indication: Brain neoplasm
     Dosage: 0.9 MILLIGRAM/SQ. METER
     Route: 048
  3. ETOPOSIDE [Suspect]
     Active Substance: ETOPOSIDE
     Indication: Brain neoplasm
     Dosage: 25 MILLIGRAM/SQ. METER
     Route: 048

REACTIONS (3)
  - Medulloblastoma [Unknown]
  - Off label use [Unknown]
  - Fatigue [Unknown]
